FAERS Safety Report 22394395 (Version 4)
Quarter: 2024Q1

REPORT INFORMATION
  Report Type: Spontaneous
  Country: US (occurrence: US)
  Receive Date: 20230601
  Receipt Date: 20240215
  Transmission Date: 20240410
  Serious: No
  Sender: FDA-Public Use
  Company Number: US-VERTEX PHARMACEUTICALS-2023-007799

PATIENT

DRUGS (3)
  1. TRIKAFTA [Suspect]
     Active Substance: ELEXACAFTOR\IVACAFTOR\TEZACAFTOR
     Indication: Cystic fibrosis
     Dosage: UNKNOWN FREQUENCY
     Route: 048
  2. TRIKAFTA [Suspect]
     Active Substance: ELEXACAFTOR\IVACAFTOR\TEZACAFTOR
     Dosage: UNKNOWN FREQUENCY-1/2 DOSE
     Route: 048
  3. TRIKAFTA [Suspect]
     Active Substance: ELEXACAFTOR\IVACAFTOR\TEZACAFTOR
     Dosage: UNKNOWN FREQUENCY-3/4 DOSE
     Route: 048

REACTIONS (8)
  - Productive cough [Unknown]
  - Pain [Unknown]
  - Respiration abnormal [Unknown]
  - Abdominal pain [Unknown]
  - Muscle spasms [Unknown]
  - Inflammation [Unknown]
  - Illness [Unknown]
  - Weight decreased [Not Recovered/Not Resolved]
